FAERS Safety Report 14640846 (Version 1)
Quarter: 2018Q1

REPORT INFORMATION
  Report Type: Spontaneous
  Country: ES (occurrence: ES)
  Receive Date: 20180315
  Receipt Date: 20180315
  Transmission Date: 20180509
  Serious: Yes (Other)
  Sender: FDA-Public Use
  Company Number: PHHY2018ES037348

PATIENT
  Age: 29 Year
  Sex: Female

DRUGS (6)
  1. VALPROATE SODIUM. [Suspect]
     Active Substance: VALPROATE SODIUM
     Indication: SCHIZOPHRENIA
     Dosage: 800 MG, QD
     Route: 048
  2. IBUPROFEN. [Interacting]
     Active Substance: IBUPROFEN
     Indication: BRONCHITIS
     Dosage: 1800 MG, QD
     Route: 065
  3. CLOZAPINE. [Concomitant]
     Active Substance: CLOZAPINE
     Indication: SCHIZOPHRENIA
     Dosage: 600 MG, QD
     Route: 065
  4. RISPERIDONE. [Concomitant]
     Active Substance: RISPERIDONE
     Indication: SCHIZOPHRENIA
     Dosage: 50 MG, Q2W
     Route: 030
  5. RISPERIDONE. [Concomitant]
     Active Substance: RISPERIDONE
     Dosage: 3 MG, QD
     Route: 065
  6. PALIPERIDONE PALMITATE [Concomitant]
     Active Substance: PALIPERIDONE PALMITATE
     Indication: SCHIZOPHRENIA
     Dosage: 150 MG, EVERY 28 DAYS
     Route: 030

REACTIONS (1)
  - Drug interaction [Unknown]
